FAERS Safety Report 5356925-6 (Version None)
Quarter: 2007Q2

REPORT INFORMATION
  Report Type: 
  Country: None (occurrence: None)
  Receive Date: 20070614
  Receipt Date: 20060601
  Transmission Date: 20071010
  Serious: No
  Sender: FDA-Public Use
  Company Number: US-ASTRAZENECA-2006UW10557

PATIENT
  Age: 45 Year
  Sex: Male
  Weight: 86.2 kg

DRUGS (2)
  1. ATACAND HCT [Suspect]
     Indication: HYPERTENSION
     Dosage: 16-12.5 MG
     Route: 048
  2. ATACAND [Suspect]
     Indication: HYPERTENSION
     Route: 048

REACTIONS (6)
  - ASTHENIA [None]
  - DIZZINESS [None]
  - DRUG INEFFECTIVE [None]
  - FATIGUE [None]
  - PHARYNGOLARYNGEAL PAIN [None]
  - SOMNOLENCE [None]
